FAERS Safety Report 25604931 (Version 1)
Quarter: 2025Q3

REPORT INFORMATION
  Report Type: Report from Study
  Country: CN (occurrence: CN)
  Receive Date: 20250725
  Receipt Date: 20250725
  Transmission Date: 20251020
  Serious: Yes (Death)
  Sender: ROCHE
  Company Number: CN-ROCHE-10000344573

PATIENT

DRUGS (9)
  1. MYCOPHENOLATE MOFETIL [Suspect]
     Active Substance: MYCOPHENOLATE MOFETIL
     Indication: Prophylaxis against graft versus host disease
     Route: 048
  2. FLUDARABINE [Suspect]
     Active Substance: FLUDARABINE PHOSPHATE
     Indication: Prophylaxis against transplant rejection
     Route: 042
  3. BUSULFAN [Suspect]
     Active Substance: BUSULFAN
     Indication: Prophylaxis against transplant rejection
     Route: 042
  4. CYCLOPHOSPHAMIDE [Suspect]
     Active Substance: CYCLOPHOSPHAMIDE
     Indication: Prophylaxis against transplant rejection
     Route: 042
  5. CYCLOSPORINE [Suspect]
     Active Substance: CYCLOSPORINE
     Indication: Prophylaxis against graft versus host disease
     Route: 042
  6. POSACONAZOLE [Concomitant]
     Active Substance: POSACONAZOLE
     Route: 048
  7. GANCICLOVIR [Concomitant]
     Active Substance: GANCICLOVIR
     Route: 042
  8. ACYCLOVIR [Concomitant]
     Active Substance: ACYCLOVIR
     Route: 042
  9. ACYCLOVIR [Concomitant]
     Active Substance: ACYCLOVIR
     Route: 048

REACTIONS (11)
  - Off label use [Fatal]
  - Thrombotic microangiopathy [Fatal]
  - Septic shock [Fatal]
  - Chronic graft versus host disease [Unknown]
  - Pneumonia [Fatal]
  - Bacteraemia [Unknown]
  - Cystitis haemorrhagic [Unknown]
  - Inflammation [Unknown]
  - Acute graft versus host disease [Unknown]
  - COVID-19 [Fatal]
  - Multiple organ dysfunction syndrome [Fatal]
